FAERS Safety Report 12458265 (Version 1)
Quarter: 2016Q2

REPORT INFORMATION
  Report Type: Spontaneous
  Country: US (occurrence: US)
  Receive Date: 20160613
  Receipt Date: 20160613
  Transmission Date: 20160815
  Serious: Yes (Death)
  Sender: FDA-Public Use
  Company Number: US-ROCHE-1774060

PATIENT
  Age: 72 Year
  Sex: Female

DRUGS (1)
  1. RITUXAN [Suspect]
     Active Substance: RITUXIMAB
     Indication: NON-HODGKIN^S LYMPHOMA
     Dosage: FORM STRENGTH: 10MG/ML
     Route: 042
     Dates: start: 20151221, end: 20160121

REACTIONS (1)
  - Death [Fatal]

NARRATIVE: CASE EVENT DATE: 20160430
